FAERS Safety Report 9720370 (Version 3)
Quarter: 2016Q1

REPORT INFORMATION
  Report Type: Report from Study
  Country: US (occurrence: US)
  Receive Date: 20131129
  Receipt Date: 20160308
  Transmission Date: 20160526
  Serious: Yes (Hospitalization, Other)
  Sender: FDA-Public Use
  Company Number: US-ROCHE-1306117

PATIENT
  Age: 78 Year
  Sex: Male
  Weight: 93.98 kg

DRUGS (17)
  1. ERIVEDGE [Interacting]
     Active Substance: VISMODEGIB
     Route: 048
     Dates: start: 20130901, end: 20150727
  2. ERIVEDGE [Interacting]
     Active Substance: VISMODEGIB
     Route: 048
     Dates: start: 2012
  3. FISH OIL [Concomitant]
     Active Substance: FISH OIL
     Route: 048
  4. FOLIC ACID. [Concomitant]
     Active Substance: FOLIC ACID
     Route: 048
  5. SYNTHROID [Concomitant]
     Active Substance: LEVOTHYROXINE SODIUM
     Dosage: INDICATION: THYROID
     Route: 065
  6. ERIVEDGE [Interacting]
     Active Substance: VISMODEGIB
     Route: 048
     Dates: start: 20130530, end: 20131112
  7. AMLODIPINE BESYLATE. [Concomitant]
     Active Substance: AMLODIPINE BESYLATE
     Dosage: CONTROL SWELLING AND CONTROL BLOOD PRESSURE
     Route: 048
  8. GENGRAF [Concomitant]
     Active Substance: CYCLOSPORINE
     Route: 065
  9. OMEPRAZOLE. [Concomitant]
     Active Substance: OMEPRAZOLE
     Route: 065
  10. ERIVEDGE [Suspect]
     Active Substance: VISMODEGIB
     Indication: BASAL CELL CARCINOMA
     Route: 048
  11. PRAVASTATIN [Concomitant]
     Active Substance: PRAVASTATIN\PRAVASTATIN SODIUM
     Route: 065
  12. TOPROL XL [Concomitant]
     Active Substance: METOPROLOL SUCCINATE
     Route: 046
  13. VIAGRA [Concomitant]
     Active Substance: SILDENAFIL CITRATE
     Route: 048
  14. CICLOSPORIN [Interacting]
     Active Substance: CYCLOSPORINE
     Indication: PROPHYLAXIS AGAINST TRANSPLANT REJECTION
     Dosage: (MONOTHERAPY 75MG IN THE MORNING/50MG IN THE EVENING)
     Route: 065
  15. GENGRAF [Concomitant]
     Active Substance: CYCLOSPORINE
     Indication: HEART TRANSPLANT
     Dosage: 3 IN AM 3 IN PM
     Route: 065
  16. PROCRIT [Concomitant]
     Active Substance: ERYTHROPOIETIN
     Dosage: INDICATION: PROMOTES RBC GROWTH
     Route: 065
  17. DOXAZOSIN [Concomitant]
     Active Substance: DOXAZOSIN\DOXAZOSIN MESYLATE
     Route: 048

REACTIONS (14)
  - Gastrointestinal perforation [Unknown]
  - Haemorrhoids [Unknown]
  - Weight decreased [Unknown]
  - Squamous cell carcinoma [Not Recovered/Not Resolved]
  - Malignant neoplasm of eye [Not Recovered/Not Resolved]
  - Decreased appetite [Unknown]
  - Gastrointestinal haemorrhage [Recovered/Resolved]
  - Alopecia [Recovering/Resolving]
  - Drug dose omission [Unknown]
  - Dry mouth [Recovering/Resolving]
  - Asthenia [Unknown]
  - Drug interaction [Unknown]
  - Fatigue [Recovering/Resolving]
  - Muscle spasms [Recovered/Resolved]

NARRATIVE: CASE EVENT DATE: 201306
